FAERS Safety Report 23350405 (Version 1)
Quarter: 2023Q4

REPORT INFORMATION
  Report Type: Spontaneous
  Country: US (occurrence: None)
  Receive Date: 20231228
  Receipt Date: 20231228
  Transmission Date: 20240109
  Serious: Yes (Disabling)
  Sender: FDA-Public Use
  Company Number: None

PATIENT
  Age: 77 Year
  Sex: Female
  Weight: 78.75 kg

DRUGS (2)
  1. DENOSUMAB [Suspect]
     Active Substance: DENOSUMAB
     Indication: Osteopenia
  2. one a day women multivitamins over 50 [Concomitant]

REACTIONS (9)
  - Injection related reaction [None]
  - Palpitations [None]
  - Presyncope [None]
  - Muscle spasms [None]
  - Gait inability [None]
  - Back pain [None]
  - Muscle spasms [None]
  - Muscle spasticity [None]
  - Muscle spasms [None]

NARRATIVE: CASE EVENT DATE: 20230526
